FAERS Safety Report 23372603 (Version 1)
Quarter: 2024Q1

REPORT INFORMATION
  Report Type: Report from Study
  Country: KR (occurrence: KR)
  Receive Date: 20240105
  Receipt Date: 20240105
  Transmission Date: 20240410
  Serious: Yes (Death)
  Sender: FDA-Public Use
  Company Number: KR-Eisai-EC-2024-156322

PATIENT
  Age: 90 Year
  Sex: Female

DRUGS (1)
  1. FYCOMPA [Suspect]
     Active Substance: PERAMPANEL
     Indication: Status epilepticus
     Dosage: 12MG LOADING, AND MAINTAINED AT 8MG
     Route: 048

REACTIONS (2)
  - Pneumonia [Fatal]
  - Sepsis [Fatal]
